FAERS Safety Report 26072975 (Version 2)
Quarter: 2025Q4

REPORT INFORMATION
  Report Type: Report from Study
  Country: JP (occurrence: JP)
  Receive Date: 20251121
  Receipt Date: 20251209
  Transmission Date: 20260118
  Serious: Yes (Life-Threatening, Hospitalization, Other)
  Sender: ALEXION PHARMACEUTICALS
  Company Number: JP-ASTRAZENECA-230045852_013120_P_1

PATIENT
  Age: 66 Year
  Sex: Male
  Weight: 55 kg

DRUGS (2)
  1. DURVALUMAB [Suspect]
     Active Substance: DURVALUMAB
     Indication: Hepatocellular carcinoma
     Dosage: 1500 MILLIGRAM, UNK
     Dates: start: 20230523, end: 20230620
  2. TREMELIMUMAB [Suspect]
     Active Substance: TREMELIMUMAB
     Indication: Hepatocellular carcinoma
     Dosage: 300 MILLIGRAM
     Dates: start: 20230523, end: 20230523

REACTIONS (1)
  - Thrombocytopenia [Recovered/Resolved]

NARRATIVE: CASE EVENT DATE: 20230622
